FAERS Safety Report 6869753-7 (Version None)
Quarter: 2010Q3

REPORT INFORMATION
  Report Type: 
  Country: None (occurrence: None)
  Receive Date: 20100722
  Receipt Date: 20080926
  Transmission Date: 20110219
  Serious: No
  Sender: FDA-Public Use
  Company Number: US-PFIZER INC-2008068546

PATIENT
  Sex: Male
  Weight: 107.05 kg

DRUGS (5)
  1. CHANTIX [Suspect]
     Indication: SMOKING CESSATION THERAPY
     Route: 048
     Dates: start: 20080810, end: 20080812
  2. CYMBALTA [Concomitant]
  3. MORPHINE SULFATE [Concomitant]
     Indication: BACK DISORDER
  4. MORPHINE SULFATE [Concomitant]
     Indication: BACK DISORDER
  5. VALIUM [Concomitant]

REACTIONS (8)
  - DIARRHOEA [None]
  - DIZZINESS [None]
  - EYE SWELLING [None]
  - HEADACHE [None]
  - NAUSEA [None]
  - NIGHTMARE [None]
  - THINKING ABNORMAL [None]
  - VISUAL IMPAIRMENT [None]
